FAERS Safety Report 9150589 (Version 1)
Quarter: 2013Q1

REPORT INFORMATION
  Report Type: Spontaneous
  Country: US (occurrence: None)
  Receive Date: 20130305
  Receipt Date: 20130305
  Transmission Date: 20140127
  Serious: Yes (Life-Threatening, Hospitalization, Other)
  Sender: FDA-Public Use
  Company Number: None

PATIENT
  Age: 47 Year
  Sex: Female
  Weight: 79.83 kg

DRUGS (1)
  1. LEVOTHYROXINE SODIUM [Suspect]
     Indication: HYPOTHYROIDISM
     Dosage: 50MCG/25MCG, ALTERNATING DAYS PO
     Route: 048
     Dates: start: 20121031, end: 20130218

REACTIONS (8)
  - Palpitations [None]
  - Blood pressure increased [None]
  - Anxiety [None]
  - Body temperature increased [None]
  - Pollakiuria [None]
  - Frequent bowel movements [None]
  - Toxicity to various agents [None]
  - Impaired work ability [None]
